FAERS Safety Report 11748777 (Version 2)
Quarter: 2016Q2

REPORT INFORMATION
  Report Type: Report from Study
  Country: CA (occurrence: CA)
  Receive Date: 20151118
  Receipt Date: 20160616
  Transmission Date: 20160815
  Serious: Yes (Other)
  Sender: FDA-Public Use
  Company Number: CA-ROCHE-ITM201412IM008001

PATIENT
  Age: 74 Year
  Sex: Male
  Weight: 80 kg

DRUGS (12)
  1. ESBRIET [Suspect]
     Active Substance: PIRFENIDONE
     Dosage: ON 08/DEC/2015
     Route: 048
  2. VITAMIN B12 [Concomitant]
     Active Substance: CYANOCOBALAMIN
  3. ESBRIET [Suspect]
     Active Substance: PIRFENIDONE
     Indication: IDIOPATHIC PULMONARY FIBROSIS
     Dosage: ON 24/NOV/2014, HE STARTED PIRFENIDONE
     Route: 048
  4. ASA [Concomitant]
     Active Substance: ASPIRIN
     Dosage: ON ALTERNATE DAYS
     Route: 065
  5. ROSUVASTATIN. [Concomitant]
     Active Substance: ROSUVASTATIN
  6. ESBRIET [Suspect]
     Active Substance: PIRFENIDONE
     Route: 048
     Dates: start: 20150217
  7. TECTA [Concomitant]
     Active Substance: PANTOPRAZOLE MAGNESIUM
  8. DIAMICRON [Concomitant]
     Active Substance: GLICLAZIDE
  9. ESBRIET [Suspect]
     Active Substance: PIRFENIDONE
     Dosage: ON 01/DEC/2014
     Route: 048
  10. ESBRIET [Suspect]
     Active Substance: PIRFENIDONE
     Route: 048
     Dates: start: 20150209
  11. ESBRIET [Suspect]
     Active Substance: PIRFENIDONE
     Dosage: 534-534-801 MG
     Route: 048
     Dates: start: 20150218, end: 201510
  12. METFORMIN [Concomitant]
     Active Substance: METFORMIN HYDROCHLORIDE

REACTIONS (17)
  - Fatigue [Unknown]
  - Cough [Unknown]
  - Haemoglobin decreased [Not Recovered/Not Resolved]
  - Pulmonary function test decreased [Unknown]
  - Human epidermal growth factor receptor decreased [Not Recovered/Not Resolved]
  - Chest pain [Unknown]
  - Headache [Unknown]
  - Neutrophil count increased [Recovered/Resolved]
  - Depression [Unknown]
  - Nausea [Unknown]
  - Lymphocyte count decreased [Unknown]
  - Dysgeusia [Unknown]
  - Weight decreased [Unknown]
  - Decreased appetite [Unknown]
  - Drug ineffective [Unknown]
  - Blood glucose increased [Not Recovered/Not Resolved]
  - Blood creatinine increased [Not Recovered/Not Resolved]

NARRATIVE: CASE EVENT DATE: 20150227
